FAERS Safety Report 26181601 (Version 1)
Quarter: 2025Q4

REPORT INFORMATION
  Report Type: Spontaneous
  Country: US (occurrence: US)
  Receive Date: 20251221
  Receipt Date: 20251221
  Transmission Date: 20260117
  Serious: No
  Sender: BOEHRINGER INGELHEIM
  Company Number: US-Komodo Health-a23aa00000Cjp2fAAB

PATIENT
  Sex: Male

DRUGS (2)
  1. JASCAYD [Suspect]
     Active Substance: NERANDOMILAST
     Indication: Idiopathic pulmonary fibrosis
  2. OFEV [Suspect]
     Active Substance: NINTEDANIB
     Indication: Idiopathic pulmonary fibrosis
     Dates: start: 202506

REACTIONS (1)
  - Hepatic enzyme increased [Not Recovered/Not Resolved]
